FAERS Safety Report 10706268 (Version 4)
Quarter: 2015Q2

REPORT INFORMATION
  Report Type: Spontaneous
  Country: US (occurrence: None)
  Receive Date: 20150108
  Receipt Date: 20150506
  Transmission Date: 20150821
  Serious: Yes (Other)
  Sender: FDA-Public Use
  Company Number: ADR-2008-5590

PATIENT
  Age: 57 Year
  Sex: Male

DRUGS (2)
  1. ANESTHESIA [Suspect]
     Active Substance: UNSPECIFIED INGREDIENT
     Dates: start: 20080624
  2. BACLOFEN INTRATHECAL 2000 MCG/ML (CANGENE) [Suspect]
     Active Substance: BACLOFEN
     Indication: MUSCLE SPASTICITY
     Dosage: 300 MCG/DAY

REACTIONS (6)
  - Drug hypersensitivity [None]
  - Dysstasia [None]
  - Post procedural complication [None]
  - No therapeutic response [None]
  - Abasia [None]
  - Stress [None]
